FAERS Safety Report 8030536-6 (Version None)
Quarter: 2011Q4

REPORT INFORMATION
  Report Type: 
  Country: None (occurrence: None)
  Receive Date: 20111130
  Receipt Date: 20110727
  Transmission Date: 20120403
  Serious: Yes (Hospitalization, Other)
  Sender: FDA-Public Use
  Company Number: US200910004064

PATIENT
  Age: 56 Year
  Sex: Male
  Weight: 113.4 kg

DRUGS (26)
  1. ZETIA [Concomitant]
  2. BYETTA [Suspect]
     Indication: TYPE 2 DIABETES MELLITUS
     Dosage: 5 UG, 2/D, SUBCUTANEOUS ; 10 UG, 2/D, SUBCUTANEOUS
     Route: 058
     Dates: start: 20060608, end: 20060711
  3. BYETTA [Suspect]
     Indication: TYPE 2 DIABETES MELLITUS
     Dosage: 5 UG, 2/D, SUBCUTANEOUS ; 10 UG, 2/D, SUBCUTANEOUS
     Route: 058
     Dates: start: 20060711, end: 20090801
  4. NIACIN [Concomitant]
  5. EXENATIDE 5MCG PEN, DISPOSABLE DEVICE (EXENATIDE PEN (5MCG)) PEN,DISPO [Concomitant]
  6. ZOCOR [Concomitant]
  7. METOLAZONE [Concomitant]
  8. EFFEXOR [Concomitant]
  9. POTASSIUM CHLORIDE [Concomitant]
  10. METFORMIN HCL [Concomitant]
  11. VALSARTAN [Concomitant]
  12. DIOVAN [Concomitant]
  13. METOPROLOL TARTRATE [Concomitant]
  14. HUMULIN /PRI/ (INSULIN HUMAN) [Concomitant]
  15. IMDUR [Concomitant]
  16. PAROXETINE HCL [Concomitant]
  17. AVANDIA [Concomitant]
  18. HUMALOG MIX /SPA/ (INSULIN LISPRO, INSULIN LISPRO PROTAMINE SUSPENSION [Concomitant]
  19. AMIODARONE HCL [Concomitant]
  20. NEXIUM [Concomitant]
  21. WARFARIN SODIUM [Concomitant]
  22. FISH OIL (FISH OIL) [Concomitant]
  23. EXENATIDE 10MCG PEN, DISPOSABLE DEVICE (EXENATIDE PEN (10MCG)) PEN,DIS [Concomitant]
  24. TRICOR [Concomitant]
  25. LASIX [Concomitant]
  26. NICOTINE [Concomitant]

REACTIONS (5)
  - OFF LABEL USE [None]
  - CHOLELITHIASIS [None]
  - PANCREATITIS ACUTE [None]
  - PANCREATITIS RELAPSING [None]
  - RENAL DISORDER [None]
